FAERS Safety Report 9396232 (Version 1)
Quarter: 2013Q3

REPORT INFORMATION
  Report Type: Spontaneous
  Country: US (occurrence: US)
  Receive Date: 20130711
  Receipt Date: 20130711
  Transmission Date: 20140515
  Serious: No
  Sender: FDA-Public Use
  Company Number: US-009507513-1307USA004824

PATIENT
  Age: 69 Year
  Sex: Female

DRUGS (6)
  1. JANUVIA [Suspect]
     Indication: TYPE 2 DIABETES MELLITUS
     Dosage: 100 MG, QD
     Route: 048
     Dates: start: 20130101
  2. METFORMIN [Concomitant]
  3. GLYBURIDE [Concomitant]
  4. METOPROLOL [Concomitant]
  5. ALDACTONE TABLETS [Concomitant]
  6. ALTACE [Concomitant]

REACTIONS (1)
  - Weight increased [Unknown]
